FAERS Safety Report 5708904-4 (Version None)
Quarter: 2008Q2

REPORT INFORMATION
  Report Type: 
  Country: None (occurrence: None)
  Receive Date: 20080416
  Receipt Date: 20080407
  Transmission Date: 20081010
  Serious: Yes (Death)
  Sender: FDA-Public Use
  Company Number: 19063

PATIENT
  Sex: Female

DRUGS (4)
  1. LEUCOVORIN CALCIUM [Suspect]
  2. AVASTIN [Suspect]
  3. FLUOROURACIL [Suspect]
  4. ELOXATIN [Suspect]

REACTIONS (1)
  - DEATH [None]
